FAERS Safety Report 5409333-3 (Version None)
Quarter: 2007Q3

REPORT INFORMATION
  Report Type: 
  Country: None (occurrence: None)
  Receive Date: 20070809
  Receipt Date: 20070731
  Transmission Date: 20080115
  Serious: Yes (Hospitalization)
  Sender: FDA-Public Use
  Company Number: US-JNJFOC-20070800893

PATIENT
  Sex: Female
  Weight: 132.9 kg

DRUGS (10)
  1. FENTANYL TRANSDERMAL SYSTEM [Suspect]
     Indication: PAIN
     Route: 062
  2. FENTANYL [Suspect]
     Route: 062
  3. FENTANYL [Suspect]
     Route: 062
  4. FENTANYL [Suspect]
     Route: 062
  5. FENTANYL [Suspect]
     Indication: PAIN
     Route: 062
  6. PREMARIN [Concomitant]
     Route: 048
  7. KLONOPIN [Concomitant]
     Indication: ANXIETY
     Route: 048
  8. OMEGA 3 FISH OIL [Concomitant]
     Route: 048
  9. FLAXSEED OIL [Concomitant]
     Route: 048
  10. IRON [Concomitant]
     Route: 048

REACTIONS (10)
  - ANAEMIA [None]
  - APPLICATION SITE RASH [None]
  - DEPRESSION [None]
  - DRUG WITHDRAWAL SYNDROME [None]
  - FIBROMYALGIA [None]
  - INTERVERTEBRAL DISC PROTRUSION [None]
  - PAIN [None]
  - PHARMACEUTICAL PRODUCT COMPLAINT [None]
  - SPINAL COLUMN STENOSIS [None]
  - WEIGHT DECREASED [None]
